FAERS Safety Report 26040316 (Version 1)
Quarter: 2025Q4

REPORT INFORMATION
  Report Type: Spontaneous
  Country: EU (occurrence: EU)
  Receive Date: 20251113
  Receipt Date: 20251113
  Transmission Date: 20260117
  Serious: Yes (Hospitalization, Other)
  Sender: AUROBINDO
  Company Number: EU-MYLANLABS-2025M1026918

PATIENT
  Age: 48 Year
  Sex: Female

DRUGS (43)
  1. CYPROTERONE [Suspect]
     Active Substance: CYPROTERONE
     Indication: Product used for unknown indication
     Dosage: 50 MILLIGRAM
     Route: 048
     Dates: start: 20070412, end: 20120822
  2. CYPROTERONE [Suspect]
     Active Substance: CYPROTERONE
     Dosage: 50 MILLIGRAM
     Route: 048
     Dates: start: 20120831
  3. CYPROTERONE [Suspect]
     Active Substance: CYPROTERONE
     Dosage: 50 MILLIGRAM
     Route: 048
     Dates: start: 20071129, end: 20120822
  4. IBUPROFEN [Suspect]
     Active Substance: IBUPROFEN
     Indication: Migraine
     Route: 065
  5. CYPROTERONE ACETATE [Suspect]
     Active Substance: CYPROTERONE ACETATE
     Indication: Product used for unknown indication
     Dosage: 50 MILLIGRAM
     Route: 048
     Dates: start: 20070831, end: 20070927
  6. CHLORMADINONE [Suspect]
     Active Substance: CHLORMADINONE
     Indication: Product used for unknown indication
     Dosage: 10 MILLIGRAM
     Route: 048
     Dates: start: 20120928, end: 20200625
  7. CHLORMADINONE [Suspect]
     Active Substance: CHLORMADINONE
     Dosage: 10 MILLIGRAM
     Route: 048
     Dates: start: 20120928, end: 20131109
  8. CHLORMADINONE [Suspect]
     Active Substance: CHLORMADINONE
     Dosage: 10 MILLIGRAM
     Route: 048
     Dates: start: 20190316, end: 20190518
  9. CHLORMADINONE [Suspect]
     Active Substance: CHLORMADINONE
     Dosage: 10 MILLIGRAM
     Route: 048
     Dates: start: 20190316, end: 20190614
  10. NOMEGESTROL ACETATE [Suspect]
     Active Substance: NOMEGESTROL ACETATE
     Indication: Product used for unknown indication
     Dosage: 5 MILLIGRAM
     Route: 065
     Dates: start: 20030603, end: 20070407
  11. CHLORMADINONE ACETATE [Suspect]
     Active Substance: CHLORMADINONE ACETATE
     Indication: Product used for unknown indication
     Dosage: UNK
     Route: 065
     Dates: start: 20120928, end: 20200625
  12. CYPROTERONE ACETATE [Suspect]
     Active Substance: CYPROTERONE ACETATE
     Indication: Product used for unknown indication
     Dosage: 50 MILLIGRAM
     Route: 048
     Dates: start: 20070412, end: 20070801
  13. CHLORMADINONE ACETATE [Suspect]
     Active Substance: CHLORMADINONE ACETATE
     Indication: Product used for unknown indication
     Dosage: 10 MILLIGRAM
     Route: 048
     Dates: start: 20190615, end: 20200625
  14. CYPROTERONE ACETATE [Suspect]
     Active Substance: CYPROTERONE ACETATE
     Indication: Product used for unknown indication
     Dosage: 50 MILLIGRAM
     Route: 048
     Dates: start: 20090204, end: 20120822
  15. CHLORMADINONE ACETATE [Suspect]
     Active Substance: CHLORMADINONE ACETATE
     Indication: Product used for unknown indication
     Dosage: 10 MILLIGRAM
     Route: 065
     Dates: start: 20121216, end: 20190212
  16. CODEINE [Concomitant]
     Active Substance: CODEINE
     Indication: Product used for unknown indication
     Dosage: UNK
     Route: 065
     Dates: start: 20200406, end: 20200914
  17. DAFALGAN [Concomitant]
     Active Substance: ACETAMINOPHEN
     Indication: Pyrexia
     Dosage: 1 GRAM
     Route: 048
     Dates: start: 20200406, end: 20200914
  18. AMITRIPTYLINE HYDROCHLORIDE [Concomitant]
     Active Substance: AMITRIPTYLINE HYDROCHLORIDE
     Indication: Headache
     Dosage: 75 MILLIGRAM
     Route: 065
     Dates: start: 20210824
  19. FOLIC ACID [Concomitant]
     Active Substance: FOLIC ACID
     Indication: Product used for unknown indication
     Dosage: 1 DOSAGE FORM, ONCE A DAY (QD)
     Route: 065
  20. FERROUS FUMARATE [Concomitant]
     Active Substance: FERROUS FUMARATE
     Indication: Product used for unknown indication
     Dosage: 1 DOSAGE FORM, 3 TIMES A DAY
     Route: 065
  21. LANSOPRAZOLE [Concomitant]
     Active Substance: LANSOPRAZOLE
     Indication: Product used for unknown indication
     Dosage: 30 MILLIGRAM, ONCE A DAY
  22. LOVENOX [Concomitant]
     Active Substance: ENOXAPARIN SODIUM
     Indication: Product used for unknown indication
     Dosage: UNK
     Route: 065
  23. ZOLPIDEM TARTRATE [Concomitant]
     Active Substance: ZOLPIDEM TARTRATE
     Indication: Product used for unknown indication
     Dosage: UNK
     Route: 065
     Dates: start: 20140415
  24. ZOLPIDEM [Concomitant]
     Active Substance: ZOLPIDEM TARTRATE
     Indication: Product used for unknown indication
     Dosage: UNK
     Route: 065
  25. TETRAZEPAM [Concomitant]
     Active Substance: TETRAZEPAM
     Indication: Product used for unknown indication
     Dosage: UNK
     Route: 065
  26. ETIFOXINE [Concomitant]
     Active Substance: ETIFOXINE
     Indication: Product used for unknown indication
     Dosage: UNK
     Route: 065
  27. ETIFOXINE HYDROCHLORIDE [Concomitant]
     Active Substance: ETIFOXINE HYDROCHLORIDE
     Indication: Product used for unknown indication
     Dosage: UNK
     Route: 065
  28. DEXAMETHASONE [Concomitant]
     Active Substance: DEXAMETHASONE
     Indication: Product used for unknown indication
     Route: 065
  29. OXYTETRACYCLINE [Concomitant]
     Active Substance: OXYTETRACYCLINE
     Indication: Product used for unknown indication
     Dosage: UNK
     Route: 065
  30. SALICYLAMIDE [Concomitant]
     Active Substance: SALICYLAMIDE
     Indication: Product used for unknown indication
     Dosage: UNK
     Route: 065
  31. DICLOFENAC DIETHYLAMINE [Concomitant]
     Active Substance: DICLOFENAC DIETHYLAMINE
     Indication: Product used for unknown indication
     Dosage: UNK
     Route: 065
  32. CARBOMER [Concomitant]
     Active Substance: CARBOMER
     Indication: Product used for unknown indication
     Dosage: UNK
     Route: 065
  33. ACETAMINOPHEN\CODEINE PHOSPHATE [Concomitant]
     Active Substance: ACETAMINOPHEN\CODEINE PHOSPHATE
     Indication: Arthralgia
     Dosage: UNKNOWN
     Route: 065
  34. ACETAMINOPHEN\OPIUM [Concomitant]
     Active Substance: ACETAMINOPHEN\OPIUM
     Indication: Product used for unknown indication
     Dosage: 1 DOSAGE FORM
     Route: 065
  35. Papaver somniferum [Concomitant]
     Indication: Product used for unknown indication
     Dosage: UNK
     Route: 065
  36. KETOPROFEN [Concomitant]
     Active Substance: KETOPROFEN
     Indication: Sciatica
     Route: 065
  37. BROMAZEPAM [Concomitant]
     Active Substance: BROMAZEPAM
     Indication: Product used for unknown indication
     Dosage: UNK
     Route: 065
  38. Elfasette [Concomitant]
     Indication: Contraception
     Dosage: UNK
     Route: 065
  39. Percutalgine [Concomitant]
     Indication: Product used for unknown indication
     Dosage: 60 GRAM
     Route: 065
  40. GINKGO EXTRACT\HEPTAMINOL\TROXERUTIN [Concomitant]
     Active Substance: GINKGO\HEPTAMINOL\TROXERUTIN
     Indication: Product used for unknown indication
     Dosage: 1 DOSAGE FORM
     Route: 065
  41. ACETAMINOPHEN\CODEINE PHOSPHATE [Concomitant]
     Active Substance: ACETAMINOPHEN\CODEINE PHOSPHATE
     Indication: Headache
     Route: 065
  42. Lamaline [Concomitant]
     Indication: Musculoskeletal chest pain
     Route: 065
  43. FLECTOR [Concomitant]
     Active Substance: DICLOFENAC EPOLAMINE
     Indication: Arthralgia
     Route: 065

REACTIONS (23)
  - Meningioma [Unknown]
  - Exophthalmos [Recovered/Resolved with Sequelae]
  - Migraine [Not Recovered/Not Resolved]
  - Eyelid oedema [Unknown]
  - Headache [Not Recovered/Not Resolved]
  - Fatigue [Not Recovered/Not Resolved]
  - Asthenia [Unknown]
  - Photophobia [Unknown]
  - Hospitalisation [Unknown]
  - Meningioma surgery [Unknown]
  - Impaired work ability [Not Recovered/Not Resolved]
  - Bursitis [Unknown]
  - Arthralgia [Unknown]
  - Peripheral venous disease [Unknown]
  - Loss of personal independence in daily activities [Unknown]
  - Chalazion [Unknown]
  - Alopecia [Unknown]
  - Intercostal neuralgia [Unknown]
  - Breast pain [Unknown]
  - Insomnia [Unknown]
  - Anxiety [Unknown]
  - Tinnitus [Unknown]
  - Drug ineffective [Unknown]

NARRATIVE: CASE EVENT DATE: 20050102
